FAERS Safety Report 15507470 (Version 1)
Quarter: 2018Q4

REPORT INFORMATION
  Report Type: Spontaneous
  Country: US (occurrence: US)
  Receive Date: 20181016
  Receipt Date: 20181016
  Transmission Date: 20190205
  Serious: Yes (Other)
  Sender: FDA-Public Use
  Company Number: US-COOPERSURGICAL, INC.-US-2018CPS033310

PATIENT

DRUGS (1)
  1. PARAGARD T 380A [Suspect]
     Active Substance: COPPER
     Indication: PRODUCT USED FOR UNKNOWN INDICATION
     Dosage: UNK
     Route: 015

REACTIONS (7)
  - Toxicity to various agents [Unknown]
  - Adrenal disorder [Unknown]
  - Impaired quality of life [Unknown]
  - Migraine [Unknown]
  - Premenstrual syndrome [Unknown]
  - Trichorrhexis [Unknown]
  - Anxiety [Unknown]
